FAERS Safety Report 7585481-7 (Version None)
Quarter: 2011Q2

REPORT INFORMATION
  Report Type: 
  Country: None (occurrence: None)
  Receive Date: 20110531
  Receipt Date: 20100528
  Transmission Date: 20111010
  Serious: Yes (Hospitalization)
  Sender: FDA-Public Use
  Company Number: WAES 1006USA00187

PATIENT
  Age: 75 Year
  Sex: Male

DRUGS (4)
  1. CRESTOR [Concomitant]
  2. ACTOS [Concomitant]
  3. LOTREL [Concomitant]
  4. JANUMET [Suspect]
     Dosage: 500MG/50 MG/BID/PO
     Route: 048

REACTIONS (1)
  - PANCREATITIS ACUTE [None]
